FAERS Safety Report 19391079 (Version 3)
Quarter: 2023Q4

REPORT INFORMATION
  Report Type: Report from Study
  Country: FR (occurrence: FR)
  Receive Date: 20210608
  Receipt Date: 20231123
  Transmission Date: 20240109
  Serious: Yes (Other)
  Sender: FDA-Public Use
  Company Number: FR-TAKEDA-2021TUS036165

PATIENT
  Age: 55 Year
  Sex: Male

DRUGS (14)
  1. TEDUGLUTIDE [Suspect]
     Active Substance: TEDUGLUTIDE
     Indication: Short-bowel syndrome
     Dosage: 2.8 MILLIGRAM, QD
     Route: 042
     Dates: start: 20170123, end: 201704
  2. TEDUGLUTIDE [Suspect]
     Active Substance: TEDUGLUTIDE
     Indication: Short-bowel syndrome
     Dosage: 2.8 MILLIGRAM, QD
     Route: 042
     Dates: start: 20170123, end: 201704
  3. TEDUGLUTIDE [Suspect]
     Active Substance: TEDUGLUTIDE
     Indication: Short-bowel syndrome
     Dosage: 2.8 MILLIGRAM, QD
     Route: 042
     Dates: start: 20170123, end: 201704
  4. TEDUGLUTIDE [Suspect]
     Active Substance: TEDUGLUTIDE
     Indication: Short-bowel syndrome
     Dosage: 2.8 MILLIGRAM, QD
     Route: 042
     Dates: start: 20170123, end: 201704
  5. TEDUGLUTIDE [Suspect]
     Active Substance: TEDUGLUTIDE
     Dosage: 3 MILLIGRAM, QD
     Route: 042
     Dates: start: 201704, end: 20210510
  6. TEDUGLUTIDE [Suspect]
     Active Substance: TEDUGLUTIDE
     Dosage: 3 MILLIGRAM, QD
     Route: 042
     Dates: start: 201704, end: 20210510
  7. TEDUGLUTIDE [Suspect]
     Active Substance: TEDUGLUTIDE
     Dosage: 3 MILLIGRAM, QD
     Route: 042
     Dates: start: 201704, end: 20210510
  8. TEDUGLUTIDE [Suspect]
     Active Substance: TEDUGLUTIDE
     Dosage: 3 MILLIGRAM, QD
     Route: 042
     Dates: start: 201704, end: 20210510
  9. ACLASTA [Concomitant]
     Active Substance: ZOLEDRONIC ACID
     Indication: Osteoporosis
     Dosage: 5 MILLIGRAM
     Route: 042
     Dates: start: 201904
  10. MAGNESIUM CARBONATE [Concomitant]
     Active Substance: MAGNESIUM CARBONATE
     Indication: Hypercalciuria
     Dosage: UNK
     Route: 065
     Dates: start: 201808
  11. MAGNESIUM CITRATE [Concomitant]
     Active Substance: MAGNESIUM CITRATE
     Indication: Hypercalciuria
     Dosage: 100 MILLIGRAM, TID
     Route: 048
     Dates: start: 201904
  12. VALACYCLOVIR HYDROCHLORIDE [Concomitant]
     Active Substance: VALACYCLOVIR HYDROCHLORIDE
     Indication: Antiviral treatment
     Dosage: 500 MILLIGRAM, BID
     Route: 048
     Dates: start: 20180910
  13. VANCOMYCIN [Concomitant]
     Active Substance: VANCOMYCIN
     Indication: Staphylococcal infection
     Dosage: 2500 MILLIGRAM, QD
     Route: 065
     Dates: start: 20201008, end: 20201028
  14. CEFPODOXIME [Concomitant]
     Active Substance: CEFPODOXIME
     Indication: Pneumonia
     Dosage: UNK
     Route: 048
     Dates: start: 202301, end: 202301

REACTIONS (1)
  - Nephrolithiasis [Recovered/Resolved with Sequelae]

NARRATIVE: CASE EVENT DATE: 20190901
